FAERS Safety Report 7479838 (Version 11)
Quarter: 2018Q4

REPORT INFORMATION
  Report Type: Spontaneous
  Country: NO (occurrence: NO)
  Receive Date: 20100716
  Receipt Date: 20181019
  Transmission Date: 20190205
  Serious: Yes (Hospitalization, Other)
  Sender: FDA-Public Use
  Company Number: NO-PFIZER INC-2010084759

PATIENT
  Age: 75 Year
  Sex: Male

DRUGS (5)
  1. METOPROLOL. [Interacting]
     Active Substance: METOPROLOL
     Indication: CARDIAC FAILURE
     Dosage: 100 MG, DAILY
  2. BUMETANIDE. [Interacting]
     Active Substance: BUMETANIDE
     Indication: CARDIAC FAILURE
     Dosage: 1.5 MG, DAILY
  3. RAMIPRIL. [Interacting]
     Active Substance: RAMIPRIL
     Indication: CARDIAC FAILURE
     Dosage: 10 MG, DAILY
  4. DIGITOXIN [Concomitant]
     Active Substance: DIGITOXIN
     Indication: CARDIAC FAILURE
     Dosage: 50 UG, DAILY
  5. SPIRONOLACTONE. [Suspect]
     Active Substance: SPIRONOLACTONE
     Indication: CARDIAC FAILURE
     Dosage: 25 MG, DAILY

REACTIONS (5)
  - Bradycardia [Recovered/Resolved]
  - Acute kidney injury [Recovered/Resolved]
  - Drug interaction [Recovered/Resolved]
  - Hyperkalaemia [Recovered/Resolved]
  - Cardiogenic shock [Recovered/Resolved]
